FAERS Safety Report 22187226 (Version 4)
Quarter: 2023Q2

REPORT INFORMATION
  Report Type: Spontaneous
  Country: JP (occurrence: JP)
  Receive Date: 20230407
  Receipt Date: 20230602
  Transmission Date: 20230721
  Serious: Yes (Hospitalization, Other)
  Sender: FDA-Public Use
  Company Number: JP-PFIZER INC-PV202300062247

PATIENT
  Age: 43 Year
  Sex: Male
  Weight: 64 kg

DRUGS (15)
  1. PAXLOVID [Interacting]
     Active Substance: NIRMATRELVIR\RITONAVIR
     Indication: COVID-19 treatment
     Dosage: UNK
     Route: 048
     Dates: start: 20221223, end: 20221226
  2. TACROLIMUS [Interacting]
     Active Substance: TACROLIMUS
     Dosage: UNK
     Route: 048
     Dates: end: 20221228
  3. TACROLIMUS [Interacting]
     Active Substance: TACROLIMUS
     Dosage: REDUCED DOSE THAN USUAL
     Route: 048
     Dates: start: 20230101
  4. TACROLIMUS [Interacting]
     Active Substance: TACROLIMUS
     Dosage: RETURNED TO NORMAL DOSE
     Route: 048
     Dates: start: 20230105
  5. TACROLIMUS [Suspect]
     Active Substance: TACROLIMUS
     Indication: Immunosuppression
     Dosage: 7.5 MG, 1X/DAY (CONTINUED FOR MORE THAN 3 YEARS)
     Route: 048
     Dates: start: 20130616, end: 20221228
  6. TACROLIMUS [Suspect]
     Active Substance: TACROLIMUS
     Dosage: UNK
     Route: 048
     Dates: start: 20221231
  7. RABEPRAZOLE [Concomitant]
     Active Substance: RABEPRAZOLE
     Indication: Gastrooesophageal reflux disease
     Dosage: 1 DF, 1X/DAY (CONTINUED FOR MORE THAN 3 YEARS)
     Route: 048
  8. NIFEDIPINE [Concomitant]
     Active Substance: NIFEDIPINE
     Indication: Hypertension
     Dosage: 1 DF, 1X/DAY (CONTINUED FOR MORE THAN 3 YEARS)
     Route: 048
  9. PREDONINE [Concomitant]
     Active Substance: PREDNISOLONE
     Indication: Immunosuppression
     Dosage: 1 DF, 1X/DAY (CONTINUED FOR MORE THAN 3 YEARS)
     Route: 048
  10. CELLCEPT [Concomitant]
     Active Substance: MYCOPHENOLATE MOFETIL
     Indication: Immunosuppression
     Dosage: 1.5 G, 2X/DAY (CONTINUED FOR MORE THAN 3 YEARS0
     Route: 048
  11. SULFAMETHOXAZOLE\TRIMETHOPRIM [Concomitant]
     Active Substance: SULFAMETHOXAZOLE\TRIMETHOPRIM
     Indication: Pneumocystis jirovecii pneumonia
     Dosage: 1 DF (3 TIMES A WEEK, CONTINUED FOR MORE THAN 3 YEARS)
     Route: 048
  12. VALSARTAN [Concomitant]
     Active Substance: VALSARTAN
     Indication: Hypertension
     Dosage: 1 DF, 1X/DAY (CONTINUED FOR MORE THAN 3 YEARS.)
     Route: 048
     Dates: start: 20221209
  13. FEBUXOSTAT [Concomitant]
     Active Substance: FEBUXOSTAT
     Indication: Hyperuricaemia
     Dosage: 1 DF, 1X/DAY (CONTINUED FOR MORE THAN 3 YEARS.)
     Route: 048
  14. FLUVASTATIN [Concomitant]
     Active Substance: FLUVASTATIN SODIUM
     Indication: Hyperlipidaemia
     Dosage: 1 DF, 1X/DAY (CONTINUED FOR MORE THAN 3 YEARS.)
     Route: 048
  15. CALCIUM POLYSTYRENE SULFONATE [Concomitant]
     Active Substance: CALCIUM POLYSTYRENE SULFONATE
     Indication: Hyperkalaemia
     Dosage: UNK, 1X/DAY
     Route: 048
     Dates: start: 20220311

REACTIONS (9)
  - Drug interaction [Unknown]
  - Acute kidney injury [Recovered/Resolved]
  - Toxicity to various agents [Recovered/Resolved]
  - Diarrhoea [Recovered/Resolved]
  - Headache [Recovered/Resolved]
  - Vomiting [Recovered/Resolved]
  - Renal impairment [Recovered/Resolved]
  - Immunosuppressant drug level increased [Unknown]
  - Eating disorder [Unknown]

NARRATIVE: CASE EVENT DATE: 20221226
